FAERS Safety Report 21494127 (Version 1)
Quarter: 2022Q4

REPORT INFORMATION
  Report Type: Spontaneous
  Country: GB (occurrence: GB)
  Receive Date: 20221021
  Receipt Date: 20221021
  Transmission Date: 20230113
  Serious: Yes (Other)
  Sender: FDA-Public Use
  Company Number: None

PATIENT
  Age: 80 Year
  Sex: Male
  Weight: 80 kg

DRUGS (6)
  1. ATORVASTATIN [Suspect]
     Active Substance: ATORVASTATIN
     Indication: Blood cholesterol increased
     Dosage: 20 MILLIGRAM DAILY; AT NIGHT, UNIT DOSE : 20 MG, OD, THERAPY END DATE : NASK
     Route: 048
     Dates: start: 20220131
  2. ASPIRIN [Concomitant]
     Active Substance: ASPIRIN
     Indication: Product used for unknown indication
     Dosage: 1 DOSAGE FORMS DAILY; ONE TABLET DISSOLVED IN WATER, UNIT DOSE : 1 DF, OD
     Dates: start: 20220131
  3. HYDROCORTISONE [Concomitant]
     Active Substance: HYDROCORTISONE
     Indication: Product used for unknown indication
     Dosage: 2 DOSAGE FORMS DAILY; APPLY THINLY... FOR FLAR...UNIT DOSE : 1 DF , FREQUENCY : BD, DURATION : 2 WEE
     Dates: start: 20220131
  4. NICORANDIL [Concomitant]
     Active Substance: NICORANDIL
     Indication: Product used for unknown indication
     Dosage: 2 DOSAGE FORMS DAILY; UNIT DOSE : 1 DF , FREQUENCY : BD
     Dates: start: 20220131
  5. ACETAMINOPHEN [Concomitant]
     Active Substance: ACETAMINOPHEN
     Indication: Pain
     Dosage: 8 DOSAGE FORMS DAILY; WHEN REQUIRED (PAIN OR FEVER...UNIT DOSE : 2 DF , FREQUENCY : 4 TIMES A DAY
     Dates: start: 20220131
  6. RAMIPRIL [Concomitant]
     Active Substance: RAMIPRIL
     Indication: Product used for unknown indication
     Dosage: 1 DOSAGE FORMS DAILY; 1 CAP, UNIT DOSE : 1 DF , FREQUENCY : OD
     Dates: start: 20220131

REACTIONS (1)
  - Necrotising myositis [Recovered/Resolved with Sequelae]

NARRATIVE: CASE EVENT DATE: 20220819
